FAERS Safety Report 8217383 (Version 2)
Quarter: 2012Q4

REPORT INFORMATION
  Report Type: 
  Country: US (occurrence: US)
  Receive Date: 20111101
  Receipt Date: 20121226
  Transmission Date: 20130627
  Serious: Yes (Congenital Anomaly, Other)
  Sender: FDA-Public Use
  Company Number: US-PFIZER INC-2011264198

PATIENT
  Age: 19 Month
  Sex: Male

DRUGS (2)
  1. ZOLOFT [Suspect]
     Dosage: UNK
     Route: 064
     Dates: start: 2000, end: 2001
  2. PRENATAL VITAMINS [Concomitant]
     Dosage: UNK
     Route: 064

REACTIONS (9)
  - Maternal exposure timing unspecified [Unknown]
  - Multiple cardiac defects [Unknown]
  - Atrial septal defect [Unknown]
  - Atrial septal defect [Unknown]
  - Congenital heart valve disorder [Unknown]
  - Pulmonary malformation [Unknown]
  - Anomalous pulmonary venous connection [Unknown]
  - Right atrial dilatation [Unknown]
  - Dilatation ventricular [Unknown]
